FAERS Safety Report 13498962 (Version 5)
Quarter: 2017Q3

REPORT INFORMATION
  Report Type: Spontaneous
  Country: KR (occurrence: KR)
  Receive Date: 20170501
  Receipt Date: 20170713
  Transmission Date: 20171127
  Serious: Yes (Death, Other)
  Sender: FDA-Public Use
  Company Number: KR-009507513-1704KOR014515

PATIENT
  Age: 42 Year
  Sex: Male
  Weight: 75 kg

DRUGS (46)
  1. EMEND (FOSAPREPITANT DIMEGLUMINE) [Suspect]
     Active Substance: FOSAPREPITANT DIMEGLUMINE
     Dosage: 150 MG, ONCE
     Route: 042
     Dates: start: 20161031, end: 20161031
  2. DEXAMETHASONE SODIUM PHOSPHATE. [Concomitant]
     Active Substance: DEXAMETHASONE SODIUM PHOSPHATE
     Indication: PROPHYLAXIS OF NAUSEA AND VOMITING
     Dosage: 12 MG, ONCE
     Route: 042
     Dates: start: 20160917, end: 20160918
  3. DEXAMETHASONE SODIUM PHOSPHATE. [Concomitant]
     Active Substance: DEXAMETHASONE SODIUM PHOSPHATE
     Dosage: 8 MG, ONCE
     Route: 042
     Dates: start: 20160919, end: 20160920
  4. DEXAMETHASONE SODIUM PHOSPHATE. [Concomitant]
     Active Substance: DEXAMETHASONE SODIUM PHOSPHATE
     Dosage: 12 MG, ONCE
     Route: 042
     Dates: start: 20161010, end: 20161011
  5. DEXAMETHASONE SODIUM PHOSPHATE. [Concomitant]
     Active Substance: DEXAMETHASONE SODIUM PHOSPHATE
     Dosage: 12 MG, ONCE
     Route: 042
     Dates: start: 20161031, end: 20161101
  6. DENOGAN [Concomitant]
     Active Substance: PROPACETAMOL HYDROCHLORIDE
     Dosage: 1 G, TWICE DAILY
     Route: 042
     Dates: start: 20161105, end: 20161105
  7. DENOGAN [Concomitant]
     Active Substance: PROPACETAMOL HYDROCHLORIDE
     Dosage: 1 G, THREE TIMES A DAY
     Route: 042
     Dates: start: 20161203, end: 20161203
  8. CISPLATIN. [Concomitant]
     Active Substance: CISPLATIN
     Dosage: 134 MG, ONCE, CYCLE 4
     Route: 042
     Dates: start: 20161122, end: 20161122
  9. PHARMORUBICIN [Concomitant]
     Active Substance: EPIRUBICIN
     Dosage: 134 MG, ONCE, CYCLE 2
     Route: 042
     Dates: start: 20161010, end: 20161010
  10. DENOGAN [Concomitant]
     Active Substance: PROPACETAMOL HYDROCHLORIDE
     Dosage: 1 G, ONCE
     Route: 042
     Dates: start: 20161014, end: 20161014
  11. DENOGAN [Concomitant]
     Active Substance: PROPACETAMOL HYDROCHLORIDE
     Dosage: 2 G, FOUR TIMES A DAY
     Route: 042
     Dates: start: 20161127, end: 20161129
  12. TARGIN [Concomitant]
     Active Substance: NALOXONE HYDROCHLORIDE\OXYCODONE HYDROCHLORIDE
     Indication: PAIN
     Dosage: 1 TABLET, TWICE A DAY
     Route: 048
     Dates: start: 20160908, end: 20161130
  13. CISPLATIN. [Concomitant]
     Active Substance: CISPLATIN
     Indication: CHEMOTHERAPY
     Dosage: 134 MG, ONCE, CYCLE 1
     Route: 042
     Dates: start: 20160917, end: 20160917
  14. CISPLATIN. [Concomitant]
     Active Substance: CISPLATIN
     Dosage: 134 MG, ONCE, CYCLE 2
     Route: 042
     Dates: start: 20161010, end: 20161010
  15. CISPLATIN. [Concomitant]
     Active Substance: CISPLATIN
     Dosage: 134 MG, ONCE, CYCLE 3
     Route: 042
     Dates: start: 20161031, end: 20161031
  16. PHARMORUBICIN [Concomitant]
     Active Substance: EPIRUBICIN
     Indication: CHEMOTHERAPY
     Dosage: 134 MG, ONCE, CYCLE 1
     Route: 042
     Dates: start: 20160917, end: 20160917
  17. LEVOFLOXACIN. [Concomitant]
     Active Substance: LEVOFLOXACIN
     Dosage: 750 MG, ONCE
     Route: 042
     Dates: start: 20161127, end: 20161130
  18. MEGESTROL ACETATE. [Concomitant]
     Active Substance: MEGESTROL ACETATE
     Indication: DECREASED APPETITE
     Dosage: 5 ML, ONCE DAILY
     Route: 048
     Dates: start: 20160917, end: 20161114
  19. TYLENOL [Concomitant]
     Active Substance: ACETAMINOPHEN
     Indication: PAIN
     Dosage: 1 TABLET, THREE TIMES A DAY
     Route: 048
     Dates: start: 20161014, end: 20161015
  20. PHARMORUBICIN [Concomitant]
     Active Substance: EPIRUBICIN
     Dosage: 127 MG, ONCE, CYCLE 4
     Route: 042
     Dates: start: 20161122, end: 20161122
  21. ALOXI [Concomitant]
     Active Substance: PALONOSETRON HYDROCHLORIDE
     Dosage: 0.25 MG, ONCE
     Route: 042
     Dates: start: 20161031, end: 20161031
  22. CEFTRIAXONE. [Concomitant]
     Active Substance: CEFTRIAXONE
     Indication: PROPHYLAXIS
     Dosage: 2 G, ONCE DAILY
     Route: 042
     Dates: start: 20161114, end: 20161116
  23. MAGNESIUM OXIDE. [Concomitant]
     Active Substance: MAGNESIUM OXIDE
     Indication: CONSTIPATION PROPHYLAXIS
     Dosage: 1 TABLET, TWICE A DAY
     Route: 048
     Dates: start: 20161011, end: 20161031
  24. EMEND (FOSAPREPITANT DIMEGLUMINE) [Suspect]
     Active Substance: FOSAPREPITANT DIMEGLUMINE
     Dosage: 150 MG, ONCE
     Route: 042
     Dates: start: 20161010, end: 20161010
  25. DEXAMETHASONE SODIUM PHOSPHATE. [Concomitant]
     Active Substance: DEXAMETHASONE SODIUM PHOSPHATE
     Dosage: 12 MG, ONCE
     Route: 042
     Dates: start: 20161122, end: 20161123
  26. LEVOFLOXACIN. [Concomitant]
     Active Substance: LEVOFLOXACIN
     Indication: PROPHYLAXIS
     Dosage: 750 MG, ONCE
     Route: 042
     Dates: start: 20161106, end: 20161109
  27. DENOGAN [Concomitant]
     Active Substance: PROPACETAMOL HYDROCHLORIDE
     Indication: PAIN
     Dosage: 1 G, TWICE DAILY
     Route: 042
     Dates: start: 20160921, end: 20160921
  28. IRCODON [Concomitant]
     Active Substance: OXYCODONE HYDROCHLORIDE
     Indication: PAIN
     Dosage: 1 TABLET, FOUR TIMES A DAY
     Route: 048
     Dates: start: 20160908, end: 20160918
  29. BLEOCIN [Concomitant]
     Active Substance: BLEOMYCIN SULFATE
     Dosage: 29.1 MG, ONCE, CYCLE 2
     Route: 042
     Dates: start: 20161010, end: 20161014
  30. BLEOCIN [Concomitant]
     Active Substance: BLEOMYCIN SULFATE
     Dosage: 29.1 MG, ONCE, CYCLE 3
     Route: 042
     Dates: start: 20161031, end: 20161104
  31. DEXAMETHASONE SODIUM PHOSPHATE. [Concomitant]
     Active Substance: DEXAMETHASONE SODIUM PHOSPHATE
     Dosage: 8 MG, ONCE
     Route: 042
     Dates: start: 20161102, end: 20161104
  32. ALOXI [Concomitant]
     Active Substance: PALONOSETRON HYDROCHLORIDE
     Indication: PROPHYLAXIS OF NAUSEA AND VOMITING
     Dosage: 0.25 MG, ONCE
     Route: 042
     Dates: start: 20160917, end: 20160917
  33. ALOXI [Concomitant]
     Active Substance: PALONOSETRON HYDROCHLORIDE
     Dosage: 0.25 MG, ONCE
     Route: 042
     Dates: start: 20161122, end: 20161122
  34. DENOGAN [Concomitant]
     Active Substance: PROPACETAMOL HYDROCHLORIDE
     Dosage: 2 G, TWICE A DAY
     Route: 042
     Dates: start: 20161201, end: 20161201
  35. TYLENOL [Concomitant]
     Active Substance: ACETAMINOPHEN
     Dosage: 1 TABLET, THREE TIMES A DAY
     Route: 048
     Dates: start: 20161105, end: 20161108
  36. PANTOLINE TABLETS [Concomitant]
     Indication: PROPHYLAXIS AGAINST GASTROINTESTINAL ULCER
     Dosage: 1 TABLET, ONCE DAILY
     Route: 048
     Dates: start: 20160917, end: 20161201
  37. EMEND (FOSAPREPITANT DIMEGLUMINE) [Suspect]
     Active Substance: FOSAPREPITANT DIMEGLUMINE
     Indication: PROPHYLAXIS OF NAUSEA AND VOMITING
     Dosage: 150 MG, ONCE
     Route: 042
     Dates: start: 20160917, end: 20160917
  38. BLEOCIN [Concomitant]
     Active Substance: BLEOMYCIN SULFATE
     Indication: CHEMOTHERAPY
     Dosage: 29.1 MG, ONCE, CYCLE 1
     Route: 042
     Dates: start: 20160917, end: 20160921
  39. BLEOCIN [Concomitant]
     Active Substance: BLEOMYCIN SULFATE
     Dosage: 27.3 MG, ONCE, CYCLE 4
     Route: 042
     Dates: start: 20161122, end: 20161126
  40. IRCODON [Concomitant]
     Active Substance: OXYCODONE HYDROCHLORIDE
     Dosage: 1 TABLET, FOUR TIMES A DAY
     Route: 048
     Dates: start: 20161114, end: 20161122
  41. EMEND (FOSAPREPITANT DIMEGLUMINE) [Suspect]
     Active Substance: FOSAPREPITANT DIMEGLUMINE
     Dosage: 150 MG, ONCE
     Route: 042
     Dates: start: 20161122, end: 20161122
  42. PHARMORUBICIN [Concomitant]
     Active Substance: EPIRUBICIN
     Dosage: 134 MG, ONCE, CYCLE 3
     Route: 042
     Dates: start: 20161031, end: 20161031
  43. DEXAMETHASONE SODIUM PHOSPHATE. [Concomitant]
     Active Substance: DEXAMETHASONE SODIUM PHOSPHATE
     Dosage: 8 MG, ONCE
     Route: 042
     Dates: start: 20161012, end: 20161013
  44. DEXAMETHASONE SODIUM PHOSPHATE. [Concomitant]
     Active Substance: DEXAMETHASONE SODIUM PHOSPHATE
     Dosage: 8 MG, ONCE
     Route: 042
     Dates: start: 20161124, end: 20161126
  45. ALOXI [Concomitant]
     Active Substance: PALONOSETRON HYDROCHLORIDE
     Dosage: 0.25 MG, ONCE
     Route: 042
     Dates: start: 20161010, end: 20161010
  46. TARGIN [Concomitant]
     Active Substance: NALOXONE HYDROCHLORIDE\OXYCODONE HYDROCHLORIDE
     Indication: PAIN
     Dosage: 1 TABLET, TWICE A DAY
     Route: 048
     Dates: start: 20160911, end: 20161130

REACTIONS (4)
  - Otorrhoea [Not Recovered/Not Resolved]
  - Neutropenia [Recovered/Resolved]
  - Cytopenia [Not Recovered/Not Resolved]
  - Pneumonia [Fatal]

NARRATIVE: CASE EVENT DATE: 20161114
